FAERS Safety Report 5888450-8 (Version None)
Quarter: 2008Q3

REPORT INFORMATION
  Report Type: 
  Country: None (occurrence: None)
  Receive Date: 20080918
  Receipt Date: 20080911
  Transmission Date: 20090109
  Serious: Yes (Other)
  Sender: FDA-Public Use
  Company Number: JP-PFIZER INC-2008076570

PATIENT

DRUGS (1)
  1. CARDENALIN [Suspect]
     Route: 048

REACTIONS (2)
  - DEAFNESS [None]
  - DYSGEUSIA [None]
